FAERS Safety Report 5220768-4 (Version None)
Quarter: 2007Q1

REPORT INFORMATION
  Report Type: 
  Country: None (occurrence: None)
  Receive Date: 20070126
  Receipt Date: 20070112
  Transmission Date: 20070707
  Serious: Yes (Other)
  Sender: FDA-Public Use
  Company Number: PHEH2007US01013

PATIENT
  Age: 33 Year
  Sex: Male
  Weight: 97.505 kg

DRUGS (1)
  1. LOTREL [Suspect]
     Indication: HYPERTENSION
     Dosage: 5/40 MG, UNK
     Route: 048
     Dates: start: 20061206

REACTIONS (1)
  - GRAND MAL CONVULSION [None]
